FAERS Safety Report 20473812 (Version 1)
Quarter: 2022Q1

REPORT INFORMATION
  Report Type: Spontaneous
  Country: CZ (occurrence: CZ)
  Receive Date: 20220215
  Receipt Date: 20220215
  Transmission Date: 20220423
  Serious: Yes (Hospitalization)
  Sender: FDA-Public Use
  Company Number: CZ-TAKEDA-2022TUS008196

PATIENT
  Sex: Female

DRUGS (4)
  1. KIOVIG [Suspect]
     Active Substance: HUMAN IMMUNOGLOBULIN G
     Indication: Product used for unknown indication
     Dosage: 100 MILLIGRAM PER MILLILITRE
     Route: 042
  2. KIOVIG [Suspect]
     Active Substance: HUMAN IMMUNOGLOBULIN G
     Dosage: 100 MILLIGRAM PER MILLILITRE
     Route: 042
     Dates: start: 20211130, end: 20211204
  3. KIOVIG [Suspect]
     Active Substance: HUMAN IMMUNOGLOBULIN G
     Dosage: 100 MILLIGRAM PER MILLILITRE
     Route: 042
     Dates: start: 20211130, end: 20211204
  4. KIOVIG [Suspect]
     Active Substance: HUMAN IMMUNOGLOBULIN G
     Dosage: 100 MILLIGRAM PER MILLILITRE
     Route: 042
     Dates: start: 20211130, end: 20211204

REACTIONS (1)
  - Hepatitis B surface antibody positive [Recovered/Resolved]

NARRATIVE: CASE EVENT DATE: 20211130
